FAERS Safety Report 22257143 (Version 7)
Quarter: 2025Q4

REPORT INFORMATION
  Report Type: Other
  Country: GB (occurrence: GB)
  Receive Date: 20230427
  Receipt Date: 20251231
  Transmission Date: 20260118
  Serious: Yes (Other)
  Sender: STRIDES
  Company Number: None

PATIENT
  Age: 75 Year
  Sex: Female
  Weight: 57 kg

DRUGS (60)
  1. CETIRIZINE [Suspect]
     Active Substance: CETIRIZINE HYDROCHLORIDE
     Indication: Product used for unknown indication
     Dosage: 10 MILLIGRAM, QD
     Route: 048
  2. CETIRIZINE [Suspect]
     Active Substance: CETIRIZINE HYDROCHLORIDE
     Dosage: 15 MILLIGRAM
     Route: 065
  3. NAPROXEN [Suspect]
     Active Substance: NAPROXEN
     Indication: Product used for unknown indication
     Dosage: UNK
     Route: 065
  4. ISOSORBIDE MONONITRATE [Suspect]
     Active Substance: ISOSORBIDE MONONITRATE
     Indication: Product used for unknown indication
     Dosage: 50 MILLIGRAM, QD, DAILY
     Route: 048
  5. APIXABAN [Suspect]
     Active Substance: APIXABAN
     Indication: Cerebrovascular accident prophylaxis
     Dosage: 10 MILLIGRAM, QD
     Route: 065
     Dates: start: 20180207, end: 20180207
  6. APIXABAN [Suspect]
     Active Substance: APIXABAN
     Dosage: 10 MG (1 DAY); OLU: OFF LABEL DOSING FREQUENCY
     Route: 065
     Dates: start: 20180207
  7. APIXABAN [Suspect]
     Active Substance: APIXABAN
     Dosage: 5 MG, QD, OLU: OFF LABEL DOSING FREQUENCY
     Route: 065
     Dates: start: 20180207, end: 20180207
  8. BISOPROLOL FUMARATE [Suspect]
     Active Substance: BISOPROLOL FUMARATE
     Indication: Cerebrovascular accident prophylaxis
     Dosage: 10 MILLIGRAM, QD, ONCE DAILY (QD)
     Route: 065
  9. BISOPROLOL FUMARATE [Suspect]
     Active Substance: BISOPROLOL FUMARATE
     Dosage: 5 MG, QD; OFF LABEL USE
     Route: 065
     Dates: start: 20180207, end: 20180207
  10. CANDESARTAN [Suspect]
     Active Substance: CANDESARTAN
     Indication: Product used for unknown indication
     Dosage: UNK UNK, QD
     Route: 065
     Dates: start: 20220222
  11. ASTRAZENECA COVID-19 VACCINE [Suspect]
     Active Substance: AZD-1222
     Indication: COVID-19 immunisation
     Dosage: UNK
     Route: 030
     Dates: start: 20210622, end: 20210622
  12. ASTRAZENECA COVID-19 VACCINE [Suspect]
     Active Substance: AZD-1222
     Dosage: UNK
     Route: 030
     Dates: start: 20210507, end: 20210507
  13. ASTRAZENECA COVID-19 VACCINE [Suspect]
     Active Substance: AZD-1222
     Dosage: UNK
     Route: 030
     Dates: start: 20210517, end: 20210517
  14. ASTRAZENECA COVID-19 VACCINE [Suspect]
     Active Substance: AZD-1222
     Dosage: UNK
     Route: 030
  15. ASTRAZENECA COVID-19 VACCINE [Suspect]
     Active Substance: AZD-1222
     Dosage: UNK
     Route: 030
     Dates: start: 20210312, end: 20210312
  16. ASTRAZENECA COVID-19 VACCINE [Suspect]
     Active Substance: AZD-1222
     Dosage: UNK
     Route: 030
     Dates: start: 20211021, end: 20211021
  17. ASTRAZENECA COVID-19 VACCINE [Suspect]
     Active Substance: AZD-1222
     Dosage: UNK
     Route: 030
     Dates: start: 20210605, end: 20210605
  18. ASTRAZENECA COVID-19 VACCINE [Suspect]
     Active Substance: AZD-1222
     Dosage: UNK
     Route: 030
     Dates: start: 20211221, end: 20211221
  19. ASTRAZENECA COVID-19 VACCINE [Suspect]
     Active Substance: AZD-1222
     Dosage: UNK
     Route: 030
     Dates: start: 20210312, end: 20210312
  20. ASTRAZENECA COVID-19 VACCINE [Suspect]
     Active Substance: AZD-1222
     Dosage: UNK
     Route: 030
     Dates: start: 20210625, end: 20210625
  21. ASTRAZENECA COVID-19 VACCINE [Suspect]
     Active Substance: AZD-1222
     Dosage: UNK
     Route: 030
     Dates: start: 20210208, end: 20210208
  22. ASTRAZENECA COVID-19 VACCINE [Suspect]
     Active Substance: AZD-1222
     Dosage: UNK
     Route: 030
  23. ASTRAZENECA COVID-19 VACCINE [Suspect]
     Active Substance: AZD-1222
     Dosage: UNK
     Route: 030
     Dates: start: 20221214
  24. ASTRAZENECA COVID-19 VACCINE [Suspect]
     Active Substance: AZD-1222
     Dosage: UNK
     Route: 030
     Dates: start: 20210703, end: 20210703
  25. ASTRAZENECA COVID-19 VACCINE [Suspect]
     Active Substance: AZD-1222
     Dosage: UNK
     Route: 030
     Dates: start: 20220214
  26. ASTRAZENECA COVID-19 VACCINE [Suspect]
     Active Substance: AZD-1222
     Dosage: UNK
     Route: 030
     Dates: start: 20210703
  27. DAPAGLIFLOZIN [Suspect]
     Active Substance: DAPAGLIFLOZIN
     Indication: Ill-defined disorder
     Dosage: 10 MILLIGRAM, QD
     Route: 048
     Dates: start: 20230217
  28. DIGOXIN [Suspect]
     Active Substance: DIGOXIN
     Indication: Cerebrovascular accident prophylaxis
     Dosage: 63 MICROGRAM, QD
     Route: 065
  29. DIGOXIN [Suspect]
     Active Substance: DIGOXIN
     Dosage: 62.5 MICROGRAM, ONCE DAILY (QD) (MORNING)
     Route: 065
  30. ESOMEPRAZOLE MAGNESIUM [Suspect]
     Active Substance: ESOMEPRAZOLE MAGNESIUM
     Indication: Reflux laryngitis
     Dosage: 40 MILLIGRAM, ONCE DAILY (QD)
     Route: 065
  31. FELODIPINE [Suspect]
     Active Substance: FELODIPINE
     Indication: Blood pressure abnormal
     Dosage: UNK
     Route: 065
  32. HYDROCHLOROTHIAZIDE [Suspect]
     Active Substance: HYDROCHLOROTHIAZIDE
     Indication: Product used for unknown indication
     Dosage: 2 MILLIGRAM, QD
     Route: 048
  33. IMDUR [Suspect]
     Active Substance: ISOSORBIDE MONONITRATE
     Indication: Product used for unknown indication
     Dosage: 50 MILLIGRAM, QD
     Route: 048
  34. ISOSORBIDE DINITRATE [Suspect]
     Active Substance: ISOSORBIDE DINITRATE
     Indication: Product used for unknown indication
     Dosage: 50 MILLIGRAM, ONCE A DAY
     Route: 048
  35. LANSOPRAZOLE [Suspect]
     Active Substance: LANSOPRAZOLE
     Indication: Atrial fibrillation
     Dosage: 30 MG, ONCE DAILY (QD)
     Route: 065
  36. LANSOPRAZOLE [Suspect]
     Active Substance: LANSOPRAZOLE
     Dosage: 10 MILLIGRAM, QD; 5MG, QD5.0MG UNKNOWN
     Route: 065
     Dates: start: 20180207, end: 20180207
  37. LEVOTHYROXINE SODIUM [Suspect]
     Active Substance: LEVOTHYROXINE SODIUM
     Indication: Product used for unknown indication
     Dosage: 12 MICROGRAM, ONCE A DAY
     Route: 065
  38. LEVOTHYROXINE SODIUM [Suspect]
     Active Substance: LEVOTHYROXINE SODIUM
     Dosage: 125 MICROGRAM, QD (MORNING)
     Route: 065
  39. LEVOTHYROXINE SODIUM [Suspect]
     Active Substance: LEVOTHYROXINE SODIUM
     Dosage: 50 MICROGRAM, ONCE A DAY (MORNING)
     Route: 065
  40. LINAGLIPTIN [Suspect]
     Active Substance: LINAGLIPTIN
     Indication: Product used for unknown indication
     Dosage: 5 MG, ONCE DAILY (QD) (MORNING)
     Route: 065
  41. SIMVASTATIN [Suspect]
     Active Substance: SIMVASTATIN
     Indication: Product used for unknown indication
     Dosage: 40 MILLIGRAM, QD
     Route: 048
  42. AMITRIPTYLINE HYDROCHLORIDE [Concomitant]
     Active Substance: AMITRIPTYLINE HYDROCHLORIDE
     Indication: Product used for unknown indication
     Dosage: 1-2 NIGHTLY
     Route: 065
     Dates: start: 20221123
  43. AMITRIPTYLINE HYDROCHLORIDE [Concomitant]
     Active Substance: AMITRIPTYLINE HYDROCHLORIDE
     Dosage: UNK,UNK,QD
     Route: 065
     Dates: start: 20221123
  44. BENDROFLUMETHIAZIDE [Concomitant]
     Active Substance: BENDROFLUMETHIAZIDE
     Indication: Product used for unknown indication
     Dosage: UNK UNK, QD
     Route: 065
     Dates: start: 20221123
  45. BENDROFLUMETHIAZIDE [Concomitant]
     Active Substance: BENDROFLUMETHIAZIDE
     Dosage: TAKE ONE EACH MORNING
     Route: 065
     Dates: start: 20221123
  46. BISOPROLOL [Concomitant]
     Active Substance: BISOPROLOL
     Indication: Product used for unknown indication
     Dosage: UNK UNK, QD
     Route: 065
     Dates: start: 20230301
  47. ESTRIOL [Concomitant]
     Active Substance: ESTRIOL
     Indication: Atrophic vulvovaginitis
     Dosage: UNK UNK, QD
     Route: 065
     Dates: start: 20221123
  48. ESTRIOL [Concomitant]
     Active Substance: ESTRIOL
     Indication: Dyspareunia
     Dosage: UNK
     Route: 065
  49. ESTRIOL [Concomitant]
     Active Substance: ESTRIOL
     Indication: Vulvovaginal pruritus
     Dosage: APPLY APPLICATOR FULL EVERY NIGHT FOR 2 WEEKS T...
     Route: 065
  50. ESTRIOL [Concomitant]
     Active Substance: ESTRIOL
     Indication: Dyspareunia
     Dosage: UNK
     Route: 065
  51. ESTRIOL [Concomitant]
     Active Substance: ESTRIOL
     Indication: Vulvovaginal pruritus
     Dosage: UNK
     Route: 065
  52. ESTRIOL [Concomitant]
     Active Substance: ESTRIOL
     Indication: Lichen sclerosus
     Dosage: UNK
     Route: 065
  53. FOSFOMYCIN [Concomitant]
     Active Substance: FOSFOMYCIN
     Indication: Product used for unknown indication
     Dosage: TAKE ONE SACHET DISSOLVED IN A GLASS OF WATER O...
     Route: 065
     Dates: start: 20230227, end: 20230228
  54. LANSOPRAZOLE [Concomitant]
     Active Substance: LANSOPRAZOLE
     Indication: Ill-defined disorder
     Dosage: UNK UNK, QD
     Route: 065
     Dates: start: 20210628
  55. LEVOTHYROXINE [Concomitant]
     Active Substance: LEVOTHYROXINE
     Indication: Ill-defined disorder
     Dosage: UNK UNK, QD
     Route: 065
     Dates: start: 20210628
  56. LEVOTHYROXINE [Concomitant]
     Active Substance: LEVOTHYROXINE
     Dosage: UNKONE TO BE TAKEN DAILY
     Route: 065
     Dates: start: 20210628
  57. LOSARTAN [Concomitant]
     Active Substance: LOSARTAN
     Indication: Ill-defined disorder
     Dosage: UNK UNK, QD
     Route: 065
     Dates: start: 20210628
  58. OMEPRAZOLE [Concomitant]
     Active Substance: OMEPRAZOLE
     Indication: Product used for unknown indication
     Dosage: UNK UNK, QD
     Route: 065
     Dates: start: 20221123
  59. OMEPRAZOLE [Concomitant]
     Active Substance: OMEPRAZOLE
     Dosage: TAKE TWO DAILY
     Route: 065
     Dates: start: 20221123
  60. SIMVASTATIN [Concomitant]
     Active Substance: SIMVASTATIN
     Indication: Product used for unknown indication
     Dosage: UNK UNK, QD
     Route: 065
     Dates: start: 20221123

REACTIONS (71)
  - Blindness [Not Recovered/Not Resolved]
  - Myocardial infarction [Recovered/Resolved]
  - Blindness [Recovered/Resolved]
  - Blood glucose increased [Unknown]
  - Eye pruritus [Recovered/Resolved]
  - Amnesia [Not Recovered/Not Resolved]
  - Subarachnoid haemorrhage [Recovered/Resolved]
  - Cardiospasm [Not Recovered/Not Resolved]
  - Pericarditis [Not Recovered/Not Resolved]
  - Sleep terror [Recovered/Resolved]
  - Transient ischaemic attack [Recovered/Resolved]
  - Carotid artery occlusion [Recovered/Resolved]
  - Diplopia [Not Recovered/Not Resolved]
  - Cognitive disorder [Recovered/Resolved]
  - Pain of skin [Recovered/Resolved]
  - Intentional product misuse [Unknown]
  - Off label use [Recovered/Resolved with Sequelae]
  - Intentional product use issue [Unknown]
  - Immunisation [Recovered/Resolved]
  - Disturbance in attention [Recovered/Resolved]
  - Diarrhoea [Recovered/Resolved]
  - COVID-19 [Recovered/Resolved]
  - Abdominal discomfort [Unknown]
  - Hallucination [Recovered/Resolved]
  - Peripheral swelling [Recovered/Resolved]
  - Memory impairment [Recovering/Resolving]
  - Abdominal pain upper [Not Recovered/Not Resolved]
  - Malaise [Unknown]
  - Headache [Not Recovered/Not Resolved]
  - Nausea [Not Recovered/Not Resolved]
  - Dizziness [Recovered/Resolved]
  - Tinnitus [Not Recovered/Not Resolved]
  - Arthralgia [Recovered/Resolved]
  - Visual impairment [Not Recovered/Not Resolved]
  - Vasculitis [Not Recovered/Not Resolved]
  - Pruritus genital [Recovered/Resolved]
  - Fatigue [Unknown]
  - Vomiting [Recovered/Resolved]
  - Ventricular tachycardia [Not Recovered/Not Resolved]
  - Dyspnoea [Unknown]
  - Atrial tachycardia [Not Recovered/Not Resolved]
  - Anxiety [Not Recovered/Not Resolved]
  - Muscular weakness [Unknown]
  - Feeling abnormal [Unknown]
  - Insomnia [Unknown]
  - Heart rate increased [Unknown]
  - Muscle twitching [Unknown]
  - Dehydration [Unknown]
  - Hyperhidrosis [Unknown]
  - Rash papular [Recovered/Resolved]
  - Lip swelling [Recovered/Resolved]
  - Palmoplantar keratoderma [Not Recovered/Not Resolved]
  - Dry skin [Not Recovered/Not Resolved]
  - Chest pain [Unknown]
  - Palpitations [Unknown]
  - Tachycardia [Unknown]
  - Pain [Recovered/Resolved]
  - Anosmia [Recovered/Resolved]
  - Facial pain [Recovered/Resolved]
  - Back pain [Unknown]
  - Alopecia [Recovered/Resolved]
  - Pyrexia [Recovered/Resolved]
  - Tension headache [Not Recovered/Not Resolved]
  - Migraine [Not Recovered/Not Resolved]
  - Pruritus [Recovered/Resolved]
  - Angioedema [Recovered/Resolved]
  - Eczema [Unknown]
  - Fatigue [Recovered/Resolved]
  - Fatigue [Recovered/Resolved]
  - Abdominal pain upper [Not Recovered/Not Resolved]
  - Off label use [Unknown]

NARRATIVE: CASE EVENT DATE: 20180207
